FAERS Safety Report 4885643-3 (Version None)
Quarter: 2005Q4

REPORT INFORMATION
  Report Type: 
  Country: None (occurrence: None)
  Receive Date: 20051220
  Receipt Date: 20050831
  Transmission Date: 20060501
  Serious: Yes (Hospitalization, Other)
  Sender: FDA-Public Use
  Company Number: HQWYE228401SEP05

PATIENT
  Sex: Female

DRUGS (5)
  1. EFFEXOR XR [Suspect]
     Indication: BIPOLAR DISORDER
     Dosage: 75 MG A.M. AND 300 MG P.M. DAILY, ORAL
     Route: 048
     Dates: start: 19990101, end: 20050809
  2. EFFEXOR XR [Suspect]
     Indication: DEPRESSION
     Dosage: 75 MG A.M. AND 300 MG P.M. DAILY, ORAL
     Route: 048
     Dates: start: 19990101, end: 20050809
  3. RISPERDAL [Concomitant]
  4. XANAX [Concomitant]
  5. DEPAKOTE [Concomitant]

REACTIONS (1)
  - HYPONATRAEMIA [None]
